FAERS Safety Report 6165768-5 (Version None)
Quarter: 2009Q2

REPORT INFORMATION
  Report Type: 
  Country: None (occurrence: None)
  Receive Date: 20090423
  Receipt Date: 20090410
  Transmission Date: 20091009
  Serious: Yes (Death, Other)
  Sender: FDA-Public Use
  Company Number: US-ELI_LILLY_AND_COMPANY-US200903005961

PATIENT
  Age: 83 Year
  Sex: Male

DRUGS (1)
  1. ZYPREXA [Suspect]
     Indication: AGITATION
     Dosage: 5 MG, UNK
     Route: 030

REACTIONS (8)
  - BLOOD CREATINE ABNORMAL [None]
  - CARDIAC ARREST [None]
  - DEATH [None]
  - LUNG NEOPLASM MALIGNANT [None]
  - MUSCLE RIGIDITY [None]
  - MUSCULOSKELETAL STIFFNESS [None]
  - PNEUMONIA [None]
  - PYREXIA [None]
